FAERS Safety Report 13358470 (Version 1)
Quarter: 2017Q1

REPORT INFORMATION
  Report Type: Spontaneous
  Country: US (occurrence: US)
  Receive Date: 20170322
  Receipt Date: 20170322
  Transmission Date: 20170429
  Serious: Yes (Hospitalization)
  Sender: FDA-Public Use
  Company Number: US-ASTRAZENECA-2017SE28172

PATIENT
  Age: 59 Year
  Sex: Female
  Weight: 68 kg

DRUGS (6)
  1. PULMICORT RESPULES [Suspect]
     Active Substance: BUDESONIDE
     Indication: NASAL POLYPS
     Dosage: TWO TIMES A DAY
     Route: 045
     Dates: start: 2013
  2. CORTICOSTEROID NOS [Concomitant]
     Active Substance: CORTICOSTEROID NOS
  3. MONTELUKAST [Concomitant]
     Active Substance: MONTELUKAST SODIUM
     Indication: MULTIPLE ALLERGIES
  4. VENTOLIN [Concomitant]
     Active Substance: ALBUTEROL SULFATE
     Indication: INHALATION THERAPY
     Dosage: AS REQUIRED
     Route: 055
  5. QVAR [Concomitant]
     Active Substance: BECLOMETHASONE DIPROPIONATE
     Route: 055
  6. AMLODIPINE [Concomitant]
     Active Substance: AMLODIPINE BESYLATE
     Indication: HYPERTENSION

REACTIONS (10)
  - Bronchitis [Unknown]
  - Multiple allergies [Unknown]
  - Frustration tolerance decreased [Unknown]
  - Dyspnoea [Unknown]
  - Ageusia [Unknown]
  - Anosmia [Unknown]
  - Product use issue [Unknown]
  - Hypertension [Unknown]
  - Drug administered to patient of inappropriate age [Unknown]
  - Asthma [Unknown]

NARRATIVE: CASE EVENT DATE: 2013
